FAERS Safety Report 11434906 (Version 1)
Quarter: 2015Q3

REPORT INFORMATION
  Report Type: Spontaneous
  Country: US (occurrence: US)
  Receive Date: 20150831
  Receipt Date: 20150831
  Transmission Date: 20151125
  Serious: Yes (Hospitalization, Other)
  Sender: FDA-Public Use
  Company Number: US-GLAXOSMITHKLINE INC.-US2015GSK123866

PATIENT
  Sex: Female
  Weight: 75.5 kg

DRUGS (9)
  1. VALIUM [Concomitant]
     Active Substance: DIAZEPAM
  2. ADVIL [Concomitant]
     Active Substance: IBUPROFEN
  3. XELODA [Concomitant]
     Active Substance: CAPECITABINE
  4. COMPAZINE [Concomitant]
     Active Substance: PROCHLORPERAZINE MALEATE
  5. ZOFRAN [Concomitant]
     Active Substance: ONDANSETRON HYDROCHLORIDE
  6. TYKERB [Suspect]
     Active Substance: LAPATINIB DITOSYLATE
     Indication: BREAST CANCER
     Dosage: 1000 MG, QD
     Route: 048
     Dates: start: 20150731
  7. TRAMADOL. [Concomitant]
     Active Substance: TRAMADOL
  8. METHYLPREDNISOLONE. [Concomitant]
     Active Substance: METHYLPREDNISOLONE
  9. OXYCODONE [Concomitant]
     Active Substance: OXYCODONE

REACTIONS (1)
  - Hospitalisation [Unknown]
